FAERS Safety Report 12255579 (Version 1)
Quarter: 2016Q2

REPORT INFORMATION
  Report Type: Spontaneous
  Country: US (occurrence: None)
  Receive Date: 20160411
  Receipt Date: 20160411
  Transmission Date: 20160815
  Serious: No
  Sender: FDA-Public Use
  Company Number: None

PATIENT
  Age: 18 Year
  Sex: Female

DRUGS (1)
  1. HUMIRA [Suspect]
     Active Substance: ADALIMUMAB
     Indication: CROHN^S DISEASE
     Dosage: 40 MG EVERY OTHER WEEK
     Route: 058
     Dates: start: 20150731, end: 20160408

REACTIONS (3)
  - Haematochezia [None]
  - Mass [None]
  - Contusion [None]

NARRATIVE: CASE EVENT DATE: 20160406
